FAERS Safety Report 19588654 (Version 1)
Quarter: 2021Q3

REPORT INFORMATION
  Report Type: Spontaneous
  Country: US (occurrence: US)
  Receive Date: 20210721
  Receipt Date: 20210721
  Transmission Date: 20211014
  Serious: Yes (Disabling, Other)
  Sender: FDA-Public Use
  Company Number: None

PATIENT
  Age: 37 Year
  Sex: Female
  Weight: 56.25 kg

DRUGS (4)
  1. HYDROCORTISONE CREAM 2.5% [Suspect]
     Active Substance: HYDROCORTISONE
     Indication: DERMATITIS ATOPIC
     Route: 061
  2. HYDROCORTISONE CREAM 2.5% [Suspect]
     Active Substance: HYDROCORTISONE
     Indication: ECZEMA
     Route: 061
  3. MOMETASONE FUROATE. [Suspect]
     Active Substance: MOMETASONE FUROATE
     Indication: DERMATITIS ATOPIC
     Route: 061
  4. MOMETASONE FUROATE. [Suspect]
     Active Substance: MOMETASONE FUROATE
     Indication: ECZEMA
     Route: 061

REACTIONS (8)
  - Steroid withdrawal syndrome [None]
  - Depression [None]
  - Alopecia [None]
  - Nerve injury [None]
  - Insomnia [None]
  - Lymphadenopathy [None]
  - Anxiety [None]
  - Appetite disorder [None]

NARRATIVE: CASE EVENT DATE: 20170516
